FAERS Safety Report 4855817-6 (Version None)
Quarter: 2005Q4

REPORT INFORMATION
  Report Type: 
  Country: None (occurrence: None)
  Receive Date: 20051216
  Receipt Date: 20030605
  Transmission Date: 20060501
  Serious: Yes (Hospitalization, Other)
  Sender: FDA-Public Use
  Company Number: US-MERCK-0306USA00713

PATIENT
  Sex: Male
  Weight: 72 kg

DRUGS (14)
  1. VIOXX [Suspect]
     Indication: ARTHRITIS
     Route: 048
     Dates: start: 20000221, end: 20001030
  2. VIOXX [Suspect]
     Route: 048
     Dates: start: 20001030, end: 20020801
  3. KLONOPIN [Concomitant]
     Route: 065
  4. CELEXA [Concomitant]
     Route: 065
  5. PRILOSEC [Concomitant]
     Route: 065
  6. ZANTAC [Concomitant]
     Indication: GASTRITIS
     Route: 048
     Dates: start: 20000221
  7. VICODIN [Concomitant]
     Route: 065
     Dates: start: 20000501
  8. SOMA [Concomitant]
     Route: 065
     Dates: start: 20000501
  9. FIORICET TABLETS [Concomitant]
     Route: 065
  10. CYCLOBENZAPRINE HYDROCHLORIDE [Concomitant]
     Indication: PAIN
     Route: 061
     Dates: start: 20010514
  11. KETOPROFEN [Concomitant]
     Route: 061
     Dates: start: 20010514
  12. TOPAMAX [Concomitant]
     Route: 048
     Dates: start: 20010801
  13. ZANAFLEX [Concomitant]
     Route: 065
     Dates: start: 20010827
  14. ELAVIL [Concomitant]
     Route: 048

REACTIONS (16)
  - AGITATION [None]
  - CARDIAC DISORDER [None]
  - CHEST PAIN [None]
  - CONVULSION [None]
  - DEPRESSION [None]
  - HOMICIDAL IDEATION [None]
  - HYPERTENSION [None]
  - HYPOAESTHESIA [None]
  - INTERVERTEBRAL DISC PROTRUSION [None]
  - IRRITABILITY [None]
  - MEMORY IMPAIRMENT [None]
  - NAUSEA [None]
  - POST-TRAUMATIC HEADACHE [None]
  - ROTATOR CUFF SYNDROME [None]
  - VISION BLURRED [None]
  - VOMITING [None]
